FAERS Safety Report 16453772 (Version 1)
Quarter: 2019Q2

REPORT INFORMATION
  Report Type: Spontaneous
  Country: US (occurrence: US)
  Receive Date: 20190619
  Receipt Date: 20190619
  Transmission Date: 20190711
  Serious: Yes (Hospitalization, Other)
  Sender: FDA-Public Use
  Company Number: US-ASTRAZENECA-2019SE86277

PATIENT
  Age: 49 Year
  Sex: Female
  Weight: 98.4 kg

DRUGS (5)
  1. SEROQUEL [Suspect]
     Active Substance: QUETIAPINE FUMARATE
     Indication: PRODUCT USED FOR UNKNOWN INDICATION
     Route: 048
     Dates: start: 20190213
  2. LATUDA [Suspect]
     Active Substance: LURASIDONE HYDROCHLORIDE
     Indication: PRODUCT USED FOR UNKNOWN INDICATION
     Dosage: 60.0MG UNKNOWN
     Route: 048
  3. BACLOFEN. [Concomitant]
     Active Substance: BACLOFEN
  4. COGENTIN [Concomitant]
     Active Substance: BENZTROPINE MESYLATE
  5. LATUDA [Suspect]
     Active Substance: LURASIDONE HYDROCHLORIDE
     Indication: PRODUCT USED FOR UNKNOWN INDICATION
     Dosage: 40.0MG UNKNOWN
     Route: 048
     Dates: start: 20190213, end: 20190225

REACTIONS (12)
  - Anxiety [Unknown]
  - Restlessness [Unknown]
  - Seizure [Unknown]
  - Weight increased [Unknown]
  - Suicidal ideation [Unknown]
  - Musculoskeletal disorder [Unknown]
  - Extrapyramidal disorder [Unknown]
  - Muscle contractions involuntary [Unknown]
  - Tremor [Unknown]
  - Off label use [Unknown]
  - Tic [Unknown]
  - Tardive dyskinesia [Unknown]

NARRATIVE: CASE EVENT DATE: 201902
